FAERS Safety Report 13638747 (Version 1)
Quarter: 2017Q2

REPORT INFORMATION
  Report Type: Spontaneous
  Country: PL (occurrence: PL)
  Receive Date: 20170609
  Receipt Date: 20170609
  Transmission Date: 20170830
  Serious: Yes (Death, Other)
  Sender: FDA-Public Use
  Company Number: PL-FRESENIUS KABI-FK201704917

PATIENT
  Age: 7 Year
  Sex: Male

DRUGS (7)
  1. ETOPOSIDE (MANUFACTURER UNKNOWN) [Suspect]
     Active Substance: ETOPOSIDE
     Indication: NEUROECTODERMAL NEOPLASM
     Route: 065
  2. IFOSFAMIDE (MANUFACTURER UNKNOWN) [Suspect]
     Active Substance: IFOSFAMIDE
     Indication: NEUROECTODERMAL NEOPLASM
     Route: 065
  3. CARBOPLATIN (MANUFACTURER UNKNOWN) [Suspect]
     Active Substance: CARBOPLATIN
     Indication: NEUROECTODERMAL NEOPLASM
     Route: 065
  4. VINCRISTINE [Suspect]
     Active Substance: VINCRISTINE
     Indication: NEUROECTODERMAL NEOPLASM
  5. CYCLOPHOSPHAMIDE. [Suspect]
     Active Substance: CYCLOPHOSPHAMIDE
     Indication: NEUROECTODERMAL NEOPLASM
  6. ADRIAMYCIN [Suspect]
     Active Substance: DOXORUBICIN HYDROCHLORIDE
     Indication: NEUROECTODERMAL NEOPLASM
  7. ACTINOMYCIN D [Suspect]
     Active Substance: DACTINOMYCIN
     Indication: NEUROECTODERMAL NEOPLASM

REACTIONS (3)
  - Off label use [Unknown]
  - Acute myeloid leukaemia [Fatal]
  - Medication error [Unknown]
